FAERS Safety Report 15280505 (Version 5)
Quarter: 2019Q1

REPORT INFORMATION
  Report Type: Spontaneous
  Country: TW (occurrence: TW)
  Receive Date: 20180815
  Receipt Date: 20190226
  Transmission Date: 20190417
  Serious: Yes (Hospitalization)
  Sender: FDA-Public Use
  Company Number: TW-PFIZER INC-2018077116

PATIENT
  Age: 30 Year
  Sex: Male

DRUGS (5)
  1. INLYTA [Suspect]
     Active Substance: AXITINIB
     Dosage: 5 MG, 2X/DAY (BID)
     Route: 048
     Dates: start: 201810, end: 201901
  2. INLYTA [Suspect]
     Active Substance: AXITINIB
     Dosage: 6 MG, 2X/DAY (5 MG 1 DF AND 1 MG 1DF)
     Route: 048
     Dates: start: 201802, end: 201804
  3. INLYTA [Suspect]
     Active Substance: AXITINIB
     Indication: RENAL CELL CARCINOMA
     Dosage: 5 MG, 2X/DAY
     Route: 048
     Dates: start: 20171206
  4. INLYTA [Suspect]
     Active Substance: AXITINIB
     Dosage: 5 MG, QD
     Route: 048
     Dates: start: 201808, end: 2018
  5. INLYTA [Suspect]
     Active Substance: AXITINIB
     Dosage: 6 MG, 2X/DAY
     Route: 048
     Dates: start: 201804, end: 20180708

REACTIONS (8)
  - Blood pressure increased [Recovered/Resolved]
  - Hypotension [Recovering/Resolving]
  - Mouth ulceration [Recovering/Resolving]
  - Rash erythematous [Recovering/Resolving]
  - Cold sweat [Unknown]
  - Pruritus [Recovering/Resolving]
  - Dehydration [Unknown]
  - Palmar-plantar erythrodysaesthesia syndrome [Recovered/Resolved]

NARRATIVE: CASE EVENT DATE: 2018
